FAERS Safety Report 6524098-X (Version None)
Quarter: 2009Q4

REPORT INFORMATION
  Report Type: 
  Country: None (occurrence: None)
  Receive Date: 20091230
  Receipt Date: 20091230
  Transmission Date: 20100525
  Serious: Yes (Life-Threatening)
  Sender: FDA-Public Use
  Company Number: None

PATIENT
  Sex: Male
  Weight: 88.4514 kg

DRUGS (2)
  1. SEROQUEL [Suspect]
     Indication: DEPRESSION
     Dosage: 400 MG
     Dates: start: 20081101
  2. SEROQUEL [Suspect]
     Indication: DEPRESSION
     Dosage: 400 MG
     Dates: start: 20090801

REACTIONS (1)
  - DIABETES MELLITUS [None]
